FAERS Safety Report 25131367 (Version 4)
Quarter: 2025Q2

REPORT INFORMATION
  Report Type: Report from Study
  Country: BG (occurrence: BG)
  Receive Date: 20250327
  Receipt Date: 20250502
  Transmission Date: 20250716
  Serious: Yes (Hospitalization)
  Sender: AKCEA THERAPEUTICS
  Company Number: BG-AKCEA THERAPEUTICS, INC.-2025IS000531

PATIENT

DRUGS (8)
  1. TEGSEDI [Suspect]
     Active Substance: INOTERSEN SODIUM
     Indication: Hereditary neuropathic amyloidosis
     Dosage: 284 MILLIGRAM, QW
     Route: 058
     Dates: start: 20230214
  2. ELIQUIS [Concomitant]
     Active Substance: APIXABAN
     Indication: Anticoagulant therapy
     Route: 065
  3. TRIFAS [CICLOPIROX OLAMINE] [Concomitant]
     Indication: Diuretic therapy
     Route: 065
  4. TRIFAS [CICLOPIROX OLAMINE] [Concomitant]
     Dosage: 5 MILLIGRAM, QD
     Route: 065
  5. SPIRONOLACTONE [Concomitant]
     Active Substance: SPIRONOLACTONE
     Indication: Diuretic therapy
     Dosage: 25 MILLIGRAM, QD
     Route: 065
  6. VITAMIN A [Concomitant]
     Active Substance: VITAMIN A
     Indication: Product used for unknown indication
     Dosage: 2500 INTERNATIONAL UNIT, QD
     Route: 065
  7. VITAMIN A [Concomitant]
     Active Substance: VITAMIN A
     Route: 065
  8. DAPAGLIFLOZIN [Concomitant]
     Active Substance: DAPAGLIFLOZIN
     Indication: Type 2 diabetes mellitus
     Dosage: 10 MILLIGRAM, QD (IN THE MORNING)
     Route: 065

REACTIONS (9)
  - Asthenia [Recovered/Resolved]
  - Decreased appetite [Recovered/Resolved]
  - Nausea [Recovered/Resolved]
  - Vomiting [Recovered/Resolved]
  - Fatigue [Recovered/Resolved]
  - Blood urea increased [Unknown]
  - Haemoglobin decreased [Recovered/Resolved]
  - Aspartate aminotransferase increased [Unknown]
  - Alanine aminotransferase increased [Unknown]

NARRATIVE: CASE EVENT DATE: 20250212
